FAERS Safety Report 19041184 (Version 1)
Quarter: 2021Q1

REPORT INFORMATION
  Report Type: Spontaneous
  Country: GR (occurrence: GR)
  Receive Date: 20210323
  Receipt Date: 20210323
  Transmission Date: 20210420
  Serious: Yes (Hospitalization, Other)
  Sender: FDA-Public Use
  Company Number: GR-AMGEN-GRCSP2021042420

PATIENT
  Sex: Female
  Weight: 60 kg

DRUGS (87)
  1. ALDACTONE [Suspect]
     Active Substance: SPIRONOLACTONE
     Indication: LEUKOPENIA
     Dosage: UNK
     Route: 065
  2. VEPESID [Suspect]
     Active Substance: ETOPOSIDE
     Indication: HYPERTENSION
  3. CYCLOPHOSPHAMIDE. [Suspect]
     Active Substance: CYCLOPHOSPHAMIDE
     Indication: ANAEMIA
     Dosage: UNK
     Route: 065
  4. MABTHERA [Suspect]
     Active Substance: RITUXIMAB
     Indication: LEUKOPENIA
  5. ALBUMIN HUMAN [Suspect]
     Active Substance: ALBUMIN HUMAN
     Indication: HYPERTENSION
     Dosage: UNK
     Route: 065
  6. ALBUMIN HUMAN [Suspect]
     Active Substance: ALBUMIN HUMAN
     Indication: DIFFUSE LARGE B-CELL LYMPHOMA
  7. CUBICIN [Suspect]
     Active Substance: DAPTOMYCIN
     Indication: ANAEMIA
  8. VALTREX [Suspect]
     Active Substance: VALACYCLOVIR HYDROCHLORIDE
     Indication: NON-HODGKIN^S LYMPHOMA
  9. ERYTHROPOIETIN [Suspect]
     Active Substance: ERYTHROPOIETIN
     Indication: HYPERTENSION
     Dosage: UNK
     Route: 065
  10. DOXORUBICIN HCL [Suspect]
     Active Substance: DOXORUBICIN HYDROCHLORIDE
     Indication: ANAEMIA
  11. DOXORUBICIN HCL [Suspect]
     Active Substance: DOXORUBICIN HYDROCHLORIDE
     Indication: DIFFUSE LARGE B-CELL LYMPHOMA
  12. LOSEC [Suspect]
     Active Substance: OMEPRAZOLE
     Indication: HYPERTENSION
  13. LASIX [Suspect]
     Active Substance: FUROSEMIDE
     Indication: DIFFUSE LARGE B-CELL LYMPHOMA
     Dosage: UNK
     Route: 065
  14. MABTHERA [Suspect]
     Active Substance: RITUXIMAB
     Indication: NON-HODGKIN^S LYMPHOMA
  15. VINCRISTINE SULFATE. [Suspect]
     Active Substance: VINCRISTINE SULFATE
     Indication: LEUKOPENIA
     Dosage: UNK
     Route: 065
  16. VINCRISTINE SULFATE. [Suspect]
     Active Substance: VINCRISTINE SULFATE
     Indication: HYPERTENSION
  17. VINCRISTINE SULFATE. [Suspect]
     Active Substance: VINCRISTINE SULFATE
     Indication: ANAEMIA
  18. ALBUMIN HUMAN [Suspect]
     Active Substance: ALBUMIN HUMAN
     Indication: ANAEMIA
  19. PREDNISONE. [Suspect]
     Active Substance: PREDNISONE
     Indication: LEUKOPENIA
  20. PREDNISONE. [Suspect]
     Active Substance: PREDNISONE
     Indication: NON-HODGKIN^S LYMPHOMA
  21. DOXORUBICIN HCL [Suspect]
     Active Substance: DOXORUBICIN HYDROCHLORIDE
     Indication: HYPERTENSION
     Dosage: UNK
     Route: 065
  22. CHLORPHENIRAMINE MALEATE. [Suspect]
     Active Substance: CHLORPHENIRAMINE MALEATE
     Indication: NON-HODGKIN^S LYMPHOMA
     Dosage: UNK
     Route: 065
  23. CYTARABINE. [Suspect]
     Active Substance: CYTARABINE
     Indication: ANAEMIA
  24. CYTARABINE. [Suspect]
     Active Substance: CYTARABINE
     Indication: LEUKOPENIA
  25. ALDACTONE [Suspect]
     Active Substance: SPIRONOLACTONE
     Indication: HYPERTENSION
  26. VEPESID [Suspect]
     Active Substance: ETOPOSIDE
     Indication: DIFFUSE LARGE B-CELL LYMPHOMA
     Dosage: UNK
     Route: 065
  27. VEPESID [Suspect]
     Active Substance: ETOPOSIDE
     Indication: NON-HODGKIN^S LYMPHOMA
  28. CYCLOPHOSPHAMIDE. [Suspect]
     Active Substance: CYCLOPHOSPHAMIDE
     Indication: HYPERTENSION
  29. ALBUMIN HUMAN [Suspect]
     Active Substance: ALBUMIN HUMAN
     Indication: LEUKOPENIA
  30. CANCIDAS [Suspect]
     Active Substance: CASPOFUNGIN ACETATE
     Indication: NON-HODGKIN^S LYMPHOMA
  31. NORVASC [Suspect]
     Active Substance: AMLODIPINE BESYLATE
     Indication: LEUKOPENIA
  32. CUBICIN [Suspect]
     Active Substance: DAPTOMYCIN
     Indication: HYPERTENSION
  33. ERYTHROPOIETIN [Suspect]
     Active Substance: ERYTHROPOIETIN
     Indication: NON-HODGKIN^S LYMPHOMA
  34. DOXORUBICIN HCL [Suspect]
     Active Substance: DOXORUBICIN HYDROCHLORIDE
     Indication: NON-HODGKIN^S LYMPHOMA
  35. CHLORPHENIRAMINE MALEATE. [Suspect]
     Active Substance: CHLORPHENIRAMINE MALEATE
     Indication: DIFFUSE LARGE B-CELL LYMPHOMA
  36. CYTARABINE. [Suspect]
     Active Substance: CYTARABINE
     Indication: DIFFUSE LARGE B-CELL LYMPHOMA
     Dosage: UNK
     Route: 065
  37. CYCLOPHOSPHAMIDE. [Suspect]
     Active Substance: CYCLOPHOSPHAMIDE
     Indication: NON-HODGKIN^S LYMPHOMA
  38. MABTHERA [Suspect]
     Active Substance: RITUXIMAB
     Indication: HYPERTENSION
  39. CANCIDAS [Suspect]
     Active Substance: CASPOFUNGIN ACETATE
     Indication: ANAEMIA
     Dosage: UNK
     Route: 065
  40. CUBICIN [Suspect]
     Active Substance: DAPTOMYCIN
     Indication: LEUKOPENIA
  41. ERYTHROPOIETIN [Suspect]
     Active Substance: ERYTHROPOIETIN
     Indication: DIFFUSE LARGE B-CELL LYMPHOMA
  42. LOSEC [Suspect]
     Active Substance: OMEPRAZOLE
     Indication: LEUKOPENIA
  43. CHLORPHENIRAMINE MALEATE. [Suspect]
     Active Substance: CHLORPHENIRAMINE MALEATE
     Indication: ANAEMIA
  44. CHLORPHENIRAMINE MALEATE. [Suspect]
     Active Substance: CHLORPHENIRAMINE MALEATE
     Indication: HYPERTENSION
  45. VEPESID [Suspect]
     Active Substance: ETOPOSIDE
     Indication: LEUKOPENIA
  46. LASIX [Suspect]
     Active Substance: FUROSEMIDE
     Indication: HYPERTENSION
  47. MABTHERA [Suspect]
     Active Substance: RITUXIMAB
     Indication: DIFFUSE LARGE B-CELL LYMPHOMA
     Dosage: UNK
     Route: 065
  48. VINCRISTINE SULFATE. [Suspect]
     Active Substance: VINCRISTINE SULFATE
     Indication: DIFFUSE LARGE B-CELL LYMPHOMA
  49. NORVASC [Suspect]
     Active Substance: AMLODIPINE BESYLATE
     Indication: ANAEMIA
     Dosage: UNK
     Route: 065
  50. CUBICIN [Suspect]
     Active Substance: DAPTOMYCIN
     Indication: DIFFUSE LARGE B-CELL LYMPHOMA
     Dosage: UNK
     Route: 065
  51. CUBICIN [Suspect]
     Active Substance: DAPTOMYCIN
     Indication: NON-HODGKIN^S LYMPHOMA
  52. VALTREX [Suspect]
     Active Substance: VALACYCLOVIR HYDROCHLORIDE
     Indication: LEUKOPENIA
     Dosage: UNK
     Route: 065
  53. PREDNISONE. [Suspect]
     Active Substance: PREDNISONE
     Indication: HYPERTENSION
     Dosage: UNK
     Route: 065
  54. PREDNISONE. [Suspect]
     Active Substance: PREDNISONE
     Indication: DIFFUSE LARGE B-CELL LYMPHOMA
  55. LOSEC [Suspect]
     Active Substance: OMEPRAZOLE
     Indication: ANAEMIA
     Dosage: UNK
     Route: 065
  56. LOSEC [Suspect]
     Active Substance: OMEPRAZOLE
     Indication: DIFFUSE LARGE B-CELL LYMPHOMA
  57. FILGRASTIM [Suspect]
     Active Substance: FILGRASTIM
     Indication: ANAEMIA
     Dosage: UNK
     Route: 065
  58. ALDACTONE [Suspect]
     Active Substance: SPIRONOLACTONE
     Indication: DIFFUSE LARGE B-CELL LYMPHOMA
  59. CYCLOPHOSPHAMIDE. [Suspect]
     Active Substance: CYCLOPHOSPHAMIDE
     Indication: DIFFUSE LARGE B-CELL LYMPHOMA
  60. LASIX [Suspect]
     Active Substance: FUROSEMIDE
     Indication: ANAEMIA
  61. LASIX [Suspect]
     Active Substance: FUROSEMIDE
     Indication: LEUKOPENIA
  62. MABTHERA [Suspect]
     Active Substance: RITUXIMAB
     Indication: ANAEMIA
  63. CANCIDAS [Suspect]
     Active Substance: CASPOFUNGIN ACETATE
     Indication: DIFFUSE LARGE B-CELL LYMPHOMA
  64. CANCIDAS [Suspect]
     Active Substance: CASPOFUNGIN ACETATE
     Indication: HYPERTENSION
  65. VALTREX [Suspect]
     Active Substance: VALACYCLOVIR HYDROCHLORIDE
     Indication: ANAEMIA
  66. ERYTHROPOIETIN [Suspect]
     Active Substance: ERYTHROPOIETIN
     Indication: LEUKOPENIA
  67. ERYTHROPOIETIN [Suspect]
     Active Substance: ERYTHROPOIETIN
     Indication: ANAEMIA
  68. FILGRASTIM [Suspect]
     Active Substance: FILGRASTIM
     Indication: HYPERTENSION
  69. VEPESID [Suspect]
     Active Substance: ETOPOSIDE
     Indication: ANAEMIA
  70. VINCRISTINE SULFATE. [Suspect]
     Active Substance: VINCRISTINE SULFATE
     Indication: NON-HODGKIN^S LYMPHOMA
  71. CANCIDAS [Suspect]
     Active Substance: CASPOFUNGIN ACETATE
     Indication: LEUKOPENIA
  72. NORVASC [Suspect]
     Active Substance: AMLODIPINE BESYLATE
     Indication: NON-HODGKIN^S LYMPHOMA
  73. LOSEC [Suspect]
     Active Substance: OMEPRAZOLE
     Indication: NON-HODGKIN^S LYMPHOMA
  74. CYTARABINE. [Suspect]
     Active Substance: CYTARABINE
     Indication: NON-HODGKIN^S LYMPHOMA
  75. CYTARABINE. [Suspect]
     Active Substance: CYTARABINE
     Indication: HYPERTENSION
  76. ALDACTONE [Suspect]
     Active Substance: SPIRONOLACTONE
     Indication: ANAEMIA
  77. ALDACTONE [Suspect]
     Active Substance: SPIRONOLACTONE
     Indication: NON-HODGKIN^S LYMPHOMA
  78. CYCLOPHOSPHAMIDE. [Suspect]
     Active Substance: CYCLOPHOSPHAMIDE
     Indication: LEUKOPENIA
  79. LASIX [Suspect]
     Active Substance: FUROSEMIDE
     Indication: NON-HODGKIN^S LYMPHOMA
  80. ALBUMIN HUMAN [Suspect]
     Active Substance: ALBUMIN HUMAN
     Indication: NON-HODGKIN^S LYMPHOMA
  81. NORVASC [Suspect]
     Active Substance: AMLODIPINE BESYLATE
     Indication: DIFFUSE LARGE B-CELL LYMPHOMA
  82. NORVASC [Suspect]
     Active Substance: AMLODIPINE BESYLATE
     Indication: HYPERTENSION
  83. VALTREX [Suspect]
     Active Substance: VALACYCLOVIR HYDROCHLORIDE
     Indication: DIFFUSE LARGE B-CELL LYMPHOMA
  84. VALTREX [Suspect]
     Active Substance: VALACYCLOVIR HYDROCHLORIDE
     Indication: HYPERTENSION
  85. PREDNISONE. [Suspect]
     Active Substance: PREDNISONE
     Indication: ANAEMIA
  86. DOXORUBICIN HCL [Suspect]
     Active Substance: DOXORUBICIN HYDROCHLORIDE
     Indication: LEUKOPENIA
  87. CHLORPHENIRAMINE MALEATE. [Suspect]
     Active Substance: CHLORPHENIRAMINE MALEATE
     Indication: LEUKOPENIA

REACTIONS (3)
  - Neoplasm progression [Unknown]
  - Product use in unapproved indication [Unknown]
  - Diffuse large B-cell lymphoma refractory [Unknown]
